FAERS Safety Report 5509333-9 (Version None)
Quarter: 2007Q4

REPORT INFORMATION
  Report Type: 
  Country: None (occurrence: None)
  Receive Date: 20071107
  Receipt Date: 20071029
  Transmission Date: 20080405
  Serious: Yes (Hospitalization)
  Sender: FDA-Public Use
  Company Number: US-ABBOTT-07P-163-0422878-00

PATIENT
  Sex: Male

DRUGS (13)
  1. VICODIN [Suspect]
     Indication: ARTHRALGIA
     Route: 048
     Dates: start: 20050101
  2. VICODIN [Suspect]
     Indication: ARTHRITIS
  3. WARFARIN SODIUM [Suspect]
     Indication: CEREBROVASCULAR ACCIDENT PROPHYLAXIS
     Route: 048
  4. WARFARIN SODIUM [Suspect]
     Indication: THROMBOSIS PROPHYLAXIS
  5. ALPRAZOLAM [Suspect]
     Indication: INSOMNIA
     Dates: start: 20071003
  6. ALPRAZOLAM [Suspect]
     Indication: ANXIETY
  7. ESZOPICLONE [Concomitant]
     Indication: INSOMNIA
     Route: 048
     Dates: start: 20060822
  8. FAMOTIDINE [Concomitant]
     Indication: DIVERTICULITIS
     Route: 048
     Dates: start: 20040101
  9. RAMIPRIL [Concomitant]
     Indication: CARDIAC FAILURE CONGESTIVE
     Route: 048
     Dates: start: 20050118
  10. RAMIPRIL [Concomitant]
     Indication: PULMONARY HYPERTENSION
  11. PRAVASTATIN SODIUM [Concomitant]
     Indication: HYPERLIPIDAEMIA
     Route: 048
     Dates: start: 20041101
  12. TIOTROPIUM BROMIDE [Concomitant]
     Indication: CHRONIC OBSTRUCTIVE PULMONARY DISEASE
     Route: 055
     Dates: start: 20070301
  13. SALBUTAMOL SULFATE [Concomitant]
     Indication: CHRONIC OBSTRUCTIVE PULMONARY DISEASE
     Route: 055
     Dates: start: 20070301

REACTIONS (2)
  - BALANCE DISORDER [None]
  - FALL [None]
